FAERS Safety Report 4544538-5 (Version None)
Quarter: 2005Q1

REPORT INFORMATION
  Report Type: 
  Country: None (occurrence: None)
  Receive Date: 20050104
  Receipt Date: 20041220
  Transmission Date: 20050727
  Serious: No
  Sender: FDA-Public Use
  Company Number: 9542

PATIENT
  Sex: Female

DRUGS (4)
  1. PACLITAXEL [Suspect]
     Indication: OVARIAN CANCER
     Dosage: 70 MG/M2 PER CYCLE, INJ
  2. CARBOPLATIN [Suspect]
     Indication: OVARIAN CANCER
     Dosage: 500 ML PER CYCLE, INJ
  3. GEMCITABINE [Suspect]
     Indication: OVARIAN CANCER
     Dosage: 1000 MG/M2, PER CYCLE, INJ
  4. DEXAMETHASONE [Concomitant]

REACTIONS (4)
  - DYSPNOEA AT REST [None]
  - LUNG INFILTRATION [None]
  - PLEURAL EFFUSION [None]
  - PULMONARY FUNCTION TEST ABNORMAL [None]
